FAERS Safety Report 26135234 (Version 1)
Quarter: 2025Q4

REPORT INFORMATION
  Report Type: Spontaneous
  Country: US (occurrence: US)
  Receive Date: 20251209
  Receipt Date: 20251209
  Transmission Date: 20260117
  Serious: No
  Sender: NOVEN
  Company Number: US-NOVEN PHARMACEUTICALS, INC.-2025-NOV-US000208

PATIENT
  Age: 70 Year
  Sex: Female
  Weight: 80.726 kg

DRUGS (2)
  1. ESTRADIOL [Suspect]
     Active Substance: ESTRADIOL
     Indication: Product used for unknown indication
     Dosage: UNKNOWN, UNK
     Route: 062
     Dates: start: 202411
  2. ESTRADIOL [Suspect]
     Active Substance: ESTRADIOL
     Dosage: UNKNOWN, UNK
     Route: 062
     Dates: start: 202402, end: 202411

REACTIONS (3)
  - Product dose omission issue [Not Recovered/Not Resolved]
  - Product adhesion issue [Not Recovered/Not Resolved]
  - No adverse event [Unknown]

NARRATIVE: CASE EVENT DATE: 20241101
